FAERS Safety Report 6221703-2 (Version None)
Quarter: 2009Q2

REPORT INFORMATION
  Report Type: 
  Country: None (occurrence: None)
  Receive Date: 20090608
  Receipt Date: 20090521
  Transmission Date: 20091009
  Serious: Yes (Hospitalization)
  Sender: FDA-Public Use
  Company Number: 8046601

PATIENT
  Sex: Female

DRUGS (1)
  1. CIMZIA [Suspect]
     Dates: start: 19890508

REACTIONS (1)
  - HOSPITALISATION [None]
